FAERS Safety Report 4804478-0 (Version None)
Quarter: 2005Q4

REPORT INFORMATION
  Report Type: 
  Country: None (occurrence: None)
  Receive Date: 20051017
  Receipt Date: 20051005
  Transmission Date: 20060501
  Serious: Yes (Other)
  Sender: FDA-Public Use
  Company Number: 2005138352

PATIENT

DRUGS (10)
  1. DOXAZOSIN (DOXAZOSIN) [Suspect]
     Indication: BLOOD PRESSURE ABNORMAL
     Dosage: 8 MG (DAILY)
  2. AMLODIPINE [Suspect]
     Indication: BLOOD PRESSURE ABNORMAL
     Dosage: 5 MG (DAILY)
  3. ATENOLOL [Suspect]
     Indication: BLOOD PRESSURE ABNORMAL
     Dosage: 50 MG (DAILY)
  4. NIFEDIPINE [Suspect]
     Indication: ILL-DEFINED DISORDER
  5. RIFAMPICIN [Suspect]
     Indication: TUBERCULOUS PLEURISY
  6. URAPIDIL (URAPIDIL) [Suspect]
     Indication: BLOOD PRESSURE ABNORMAL
     Dosage: 30 MG (DAILY)
  7. CANDESARTAN (CANDESARTAN) [Suspect]
     Indication: BLOOD PRESSURE ABNORMAL
     Dosage: 4 MG
  8. CILNIDIPINE (CILNLIDIPINE) [Suspect]
     Indication: ILL-DEFINED DISORDER
  9. AROTINOLOL (AROTINOLOL) [Suspect]
     Indication: ILL-DEFINED DISORDER
  10. TEMOCAPRIL (TEMOCAPRIL) [Suspect]
     Indication: ILL-DEFINED DISORDER

REACTIONS (8)
  - BLOOD CREATININE INCREASED [None]
  - BLOOD PRESSURE DECREASED [None]
  - BLOOD PRESSURE INADEQUATELY CONTROLLED [None]
  - BLOOD PRESSURE INCREASED [None]
  - DIALYSIS [None]
  - MALAISE [None]
  - OEDEMA [None]
  - TUBERCULOUS PLEURISY [None]
